FAERS Safety Report 8047510-6 (Version None)
Quarter: 2012Q1

REPORT INFORMATION
  Report Type: 
  Country: None (occurrence: None)
  Receive Date: 20120116
  Receipt Date: 20120103
  Transmission Date: 20120608
  Serious: Yes (Hospitalization)
  Sender: FDA-Public Use
  Company Number: FR-ELI_LILLY_AND_COMPANY-FR201112002594

PATIENT
  Sex: Male
  Weight: 95 kg

DRUGS (10)
  1. GEMCITABINE HYDROCHLORIDE [Suspect]
     Indication: NON-SMALL CELL LUNG CANCER
     Dosage: 2500 MG, EVERY 21 DAYS/CYCLE
     Route: 042
     Dates: start: 20111019, end: 20111229
  2. CISPLATIN [Suspect]
     Dosage: 135 MG, EVERY 21 DAYS/CYCLE
     Route: 042
     Dates: start: 20111130, end: 20111130
  3. METFORMIN HCL [Concomitant]
     Indication: DIABETES MELLITUS
     Dosage: UNK
     Dates: start: 20070412
  4. CISPLATIN [Suspect]
     Indication: NON-SMALL CELL LUNG CANCER
     Dosage: 150 MG, EVERY 21 DAYS/CYCLE
     Route: 042
     Dates: start: 20111019, end: 20111229
  5. LANTUS [Concomitant]
     Indication: DIABETES MELLITUS
     Dosage: UNK
     Dates: start: 20060101
  6. GEMCITABINE HYDROCHLORIDE [Suspect]
     Dosage: 2300 MG, EVERY 21DAYS/CYCLE
     Route: 042
     Dates: start: 20111130, end: 20111130
  7. ATORVASTATIN CALCIUM [Concomitant]
     Indication: HYPERCHOLESTEROLAEMIA
     Dosage: UNK
     Dates: start: 20090313
  8. NICARDIPINE HCL [Concomitant]
     Indication: HYPERTENSION
     Dosage: UNK
     Dates: start: 20111119
  9. NOVORAPID [Concomitant]
     Indication: DIABETES MELLITUS
     Dosage: UNK
     Dates: start: 20060101
  10. ASPIRIN [Concomitant]
     Indication: ARTERIAL DISORDER
     Dosage: UNK
     Dates: start: 20090313

REACTIONS (3)
  - HOSPITALISATION [None]
  - SYNCOPE [None]
  - NAUSEA [None]
